FAERS Safety Report 13883484 (Version 1)
Quarter: 2017Q3

REPORT INFORMATION
  Report Type: Other
  Country: GB (occurrence: CO)
  Receive Date: 20170818
  Receipt Date: 20170818
  Transmission Date: 20171127
  Serious: Yes (Hospitalization, Other)
  Sender: FDA-Public Use
  Company Number: CO-INTERNATIONAL MEDICATION SYSTEMS, LIMITED-2024806

PATIENT
  Age: 54 Year
  Sex: Female

DRUGS (1)
  1. SODIUM HYDROGEN CARBONATE [Suspect]
     Active Substance: SODIUM BICARBONATE
     Indication: DYSPEPSIA
     Route: 048

REACTIONS (1)
  - Gastric perforation [Recovered/Resolved]
